FAERS Safety Report 13958741 (Version 1)
Quarter: 2017Q3

REPORT INFORMATION
  Report Type: Spontaneous
  Country: MX (occurrence: MX)
  Receive Date: 20170911
  Receipt Date: 20170911
  Transmission Date: 20171128
  Serious: Yes (Hospitalization)
  Sender: FDA-Public Use
  Company Number: MX-BIOMARINAP-MX-2017-115341

PATIENT
  Age: 13 Year
  Sex: Male
  Weight: 33 kg

DRUGS (2)
  1. ALDURAZYME [Suspect]
     Active Substance: LARONIDASE
     Indication: MUCOPOLYSACCHARIDOSIS I
     Dosage: UNK, QW
     Route: 041
  2. ALDURAZYME [Suspect]
     Active Substance: LARONIDASE
     Dosage: UNK
     Route: 041

REACTIONS (5)
  - Dysuria [Recovered/Resolved]
  - Vomiting [Recovered/Resolved]
  - Ear disorder [Recovered/Resolved]
  - Fluid retention [Recovered/Resolved]
  - Headache [Recovered/Resolved]
